FAERS Safety Report 25723571 (Version 2)
Quarter: 2025Q3

REPORT INFORMATION
  Report Type: Spontaneous
  Country: EU (occurrence: EU)
  Receive Date: 20250825
  Receipt Date: 20250916
  Transmission Date: 20251021
  Serious: Yes (Hospitalization, Other)
  Sender: NOVARTIS
  Company Number: EU-002147023-NVSC2025GR128549

PATIENT
  Age: 46 Year
  Sex: Female

DRUGS (1)
  1. KISQALI [Suspect]
     Active Substance: RIBOCICLIB SUCCINATE
     Indication: Breast cancer
     Dosage: 200 MG, QD (ACP (3X21) R29_PILLS, 3 WEEKS ON -1 WEEK OFF, APPROXIMATELY 1,5 YEARS AGO)
     Route: 048

REACTIONS (4)
  - Gastrointestinal disorder [Recovered/Resolved]
  - Product temperature excursion issue [Recovered/Resolved]
  - Product storage error [Recovered/Resolved]
  - Product dose omission issue [Recovered/Resolved]
